FAERS Safety Report 8016322-1 (Version None)
Quarter: 2011Q4

REPORT INFORMATION
  Report Type: 
  Country: None (occurrence: None)
  Receive Date: 20111228
  Receipt Date: 20111228
  Transmission Date: 20120403
  Serious: Yes (Disabling)
  Sender: FDA-Public Use
  Company Number: None

PATIENT
  Age: 70 Year
  Sex: Female
  Weight: 74.8435 kg

DRUGS (2)
  1. LEVOFLOXACIN [Suspect]
     Indication: ANTIBIOTIC THERAPY
     Dosage: 1 TAB 1 X DAILY FOR 10 DAY MOUTH
     Route: 048
     Dates: start: 20111129, end: 20111209
  2. LEVOFLOXACIN [Suspect]
     Indication: PREOPERATIVE CARE
     Dosage: 1 TAB 1 X DAILY FOR 10 DAY MOUTH
     Route: 048
     Dates: start: 20111129, end: 20111209

REACTIONS (3)
  - PRODUCT SUBSTITUTION ISSUE [None]
  - JOINT STIFFNESS [None]
  - ARTHRALGIA [None]
